FAERS Safety Report 12760333 (Version 1)
Quarter: 2016Q3

REPORT INFORMATION
  Report Type: Spontaneous
  Country: TW (occurrence: TW)
  Receive Date: 20160919
  Receipt Date: 20160919
  Transmission Date: 20161109
  Serious: Yes (Other)
  Sender: FDA-Public Use
  Company Number: TW-BAYER-2016-174672

PATIENT
  Age: 33 Year
  Sex: Female

DRUGS (1)
  1. GADOVIST [Suspect]
     Active Substance: GADOBUTROL
     Indication: NUCLEAR MAGNETIC RESONANCE IMAGING ABDOMINAL
     Dosage: 6 ML, ONCE
     Dates: start: 20160907

REACTIONS (8)
  - Rash papular [None]
  - Scleral hyperaemia [None]
  - Scleral oedema [None]
  - Erythema [None]
  - Eyelid oedema [None]
  - Ocular hyperaemia [None]
  - Swelling face [None]
  - Conjunctival haemorrhage [None]

NARRATIVE: CASE EVENT DATE: 20160907
